FAERS Safety Report 5895796-6 (Version None)
Quarter: 2008Q3

REPORT INFORMATION
  Report Type: 
  Country: None (occurrence: None)
  Receive Date: 20080924
  Receipt Date: 20080723
  Transmission Date: 20090109
  Serious: No
  Sender: FDA-Public Use
  Company Number: US-BAYER-200829469NA

PATIENT
  Age: 18 Year
  Sex: Female

DRUGS (1)
  1. OCELLA [Suspect]
     Indication: ACNE
     Route: 048
     Dates: start: 20080722

REACTIONS (3)
  - NAUSEA [None]
  - NO ADVERSE EVENT [None]
  - VOMITING [None]
